FAERS Safety Report 7325289-0 (Version None)
Quarter: 2011Q1

REPORT INFORMATION
  Report Type: 
  Country: None (occurrence: None)
  Receive Date: 20110302
  Receipt Date: 20110224
  Transmission Date: 20110831
  Serious: Yes (Hospitalization)
  Sender: FDA-Public Use
  Company Number: CA-SHIRE-PNT2-2011-00001

PATIENT
  Sex: Female
  Weight: 68.5 kg

DRUGS (7)
  1. ADALAT [Concomitant]
     Indication: ANAL FISSURE
     Dosage: UNK
     Dates: start: 20101130
  2. SOLU-CORTEF [Concomitant]
     Indication: HYPERSENSITIVITY
     Dosage: UNK
     Dates: start: 20101231, end: 20101231
  3. MULTIVITAMIN                       /00097801/ [Concomitant]
     Indication: SUPPLEMENTATION THERAPY
     Dosage: UNK
     Dates: start: 20030101
  4. XYLOCAINE [Concomitant]
     Indication: PROCTALGIA
     Dosage: UNK
     Dates: start: 20101130, end: 20101204
  5. K-DUR [Concomitant]
     Indication: HYPOKALAEMIA
     Dosage: UNK
     Dates: start: 20110102, end: 20110113
  6. MESALAMINE [Suspect]
     Indication: DIVERTICULITIS
     Dosage: 4.8 G, 1X/DAY:QD
     Dates: start: 20090414, end: 20101229
  7. SYNTHROID [Concomitant]
     Indication: HYPOTHYROIDISM
     Dosage: UNK
     Dates: start: 20030101

REACTIONS (2)
  - AGRANULOCYTOSIS [None]
  - ABSCESS [None]
